FAERS Safety Report 21590241 (Version 1)
Quarter: 2022Q4

REPORT INFORMATION
  Report Type: Spontaneous
  Country: CH (occurrence: CH)
  Receive Date: 20221114
  Receipt Date: 20221114
  Transmission Date: 20230112
  Serious: Yes (Other)
  Sender: FDA-Public Use
  Company Number: None

PATIENT
  Age: 15 Year
  Sex: Female

DRUGS (5)
  1. ZOLOFT [Suspect]
     Active Substance: SERTRALINE HYDROCHLORIDE
     Indication: Suicidal ideation
     Dosage: 100 MILLIGRAM, QD
     Route: 048
     Dates: start: 20211018
  2. RISPERDAL [Suspect]
     Active Substance: RISPERIDONE
     Indication: Hallucination
     Dosage: 2.5 MILLIGRAM, QD (1 MG MORNING AND 1.25 MG EVENING)
     Route: 048
     Dates: start: 20210209
  3. RISPERDAL [Suspect]
     Active Substance: RISPERIDONE
     Dosage: 2 MG, QD ((STILL WITH 0.25 MG 2X/DAY IN RESERVE))
     Route: 048
     Dates: start: 2022
  4. RISPERDAL [Suspect]
     Active Substance: RISPERIDONE
     Dosage: 2.25 MILLIGRAM, QD
     Route: 048
     Dates: start: 2022
  5. RISPERDAL [Suspect]
     Active Substance: RISPERIDONE
     Dosage: 2.5 MILLIGRAM, QD
     Route: 048
     Dates: start: 20220923

REACTIONS (2)
  - Syncope [Recovered/Resolved]
  - Off label use [Unknown]

NARRATIVE: CASE EVENT DATE: 20211018
